FAERS Safety Report 12885648 (Version 1)
Quarter: 2016Q4

REPORT INFORMATION
  Report Type: Report from Study
  Country: US (occurrence: US)
  Receive Date: 20161026
  Receipt Date: 20161026
  Transmission Date: 20170207
  Serious: Yes (Death)
  Sender: FDA-Public Use
  Company Number: US-HORIZON-ACT-0246-2016

PATIENT

DRUGS (1)
  1. ACTIMMUNE [Suspect]
     Active Substance: INTERFERON GAMMA-1B
     Indication: METASTATIC MALIGNANT MELANOMA
     Dosage: 2 MILLION IU IN 0.5 ML STERILE SOLUTION

REACTIONS (1)
  - Death [Fatal]
